FAERS Safety Report 9796184 (Version 1)
Quarter: 2014Q1

REPORT INFORMATION
  Report Type: Spontaneous
  Country: US (occurrence: US)
  Receive Date: 20140103
  Receipt Date: 20140103
  Transmission Date: 20141002
  Serious: Yes (Hospitalization, Other)
  Sender: FDA-Public Use
  Company Number: US-PFIZER INC-2014000033

PATIENT
  Sex: Female

DRUGS (13)
  1. RAPAMUNE [Suspect]
     Indication: LIVER TRANSPLANT
     Dosage: 2 MG, 1X/DAY
     Route: 048
     Dates: start: 2012
  2. RAPAMUNE [Suspect]
     Dosage: 1 MG, 1X/DAY
     Route: 048
  3. REVATIO [Suspect]
     Indication: PULMONARY ARTERIAL HYPERTENSION
     Dosage: 20 MG, 3X/DAY
     Route: 048
  4. PROCRIT [Concomitant]
     Dosage: 40000 UNITS, EVERY 14 DAYS
     Route: 058
  5. ZEMPLAR [Concomitant]
     Dosage: 1 UG, ALTERNATE DAY
  6. SPIRONOLACTONE [Concomitant]
     Dosage: 12.5 MG, 2X/DAY
     Route: 048
  7. TORSEMIDE [Concomitant]
     Dosage: 20 MG, 2X/DAY
  8. TOPAMAX [Concomitant]
     Dosage: 25 MG, 2X/DAY
  9. METOPROLOL [Concomitant]
     Dosage: 25 MG, 2X/DAY
  10. NEURONTIN [Concomitant]
     Dosage: 400 MG, 2X/DAY
  11. CELLCEPT [Concomitant]
     Dosage: 750 MG, DAILY
  12. SODIUM BICARBONATE [Concomitant]
     Dosage: 1300 MG, 3X/DAY
  13. CALCIUM CARBONATE [Concomitant]
     Dosage: UNK, 2X/DAY

REACTIONS (6)
  - Pneumonia [Not Recovered/Not Resolved]
  - Haemoglobin decreased [Unknown]
  - White blood cell count decreased [Unknown]
  - Blood creatinine increased [Unknown]
  - Platelet count decreased [Unknown]
  - Off label use [Unknown]
